FAERS Safety Report 6065834-9 (Version None)
Quarter: 2009Q1

REPORT INFORMATION
  Report Type: 
  Country: None (occurrence: None)
  Receive Date: 20090205
  Receipt Date: 20090128
  Transmission Date: 20090719
  Serious: Yes (Hospitalization)
  Sender: FDA-Public Use
  Company Number: US-JNJFOC-20090101449

PATIENT
  Sex: Female
  Weight: 46.27 kg

DRUGS (6)
  1. DURAGESIC-100 [Suspect]
     Indication: BACK PAIN
     Route: 062
  2. CHEMOTHERAPEUTICS [Suspect]
     Indication: DRUG USE FOR UNKNOWN INDICATION
     Route: 065
  3. INTERFERON [Concomitant]
     Route: 058
  4. RIBEVIRIN [Concomitant]
  5. COZAAR [Concomitant]
     Indication: BLOOD PRESSURE
  6. XANAX [Concomitant]
     Indication: ANXIETY

REACTIONS (4)
  - ANAEMIA [None]
  - BONE MARROW FAILURE [None]
  - THROMBOSIS [None]
  - VISUAL IMPAIRMENT [None]
